FAERS Safety Report 8910217 (Version 1)
Quarter: 2012Q4

REPORT INFORMATION
  Report Type: 
  Country: TR (occurrence: TR)
  Receive Date: 20121115
  Receipt Date: 20121115
  Transmission Date: 20130627
  Serious: Yes (Death)
  Sender: FDA-Public Use
  Company Number: TR-BIOGENIDEC-2012BI052110

PATIENT
  Sex: Female

DRUGS (3)
  1. AVONEX [Suspect]
     Indication: SUBACUTE SCLEROSING PANENCEPHALITIS
     Route: 030
  2. CARBAMAZEPINE [Concomitant]
     Indication: MYOCLONUS
  3. ISOPRINOSINE [Concomitant]
     Route: 048

REACTIONS (5)
  - Death [Fatal]
  - Apathy [Unknown]
  - Unresponsive to stimuli [Unknown]
  - Cognitive disorder [Unknown]
  - General physical health deterioration [Unknown]
